FAERS Safety Report 19488312 (Version 3)
Quarter: 2021Q4

REPORT INFORMATION
  Report Type: Spontaneous
  Country: TR (occurrence: TR)
  Receive Date: 20210702
  Receipt Date: 20211005
  Transmission Date: 20220303
  Serious: Yes (Other)
  Sender: FDA-Public Use
  Company Number: TR-ABBVIE-21K-161-3972906-00

PATIENT
  Age: 7 Year
  Sex: Female
  Weight: 22.9 kg

DRUGS (1)
  1. LEUPROLIDE ACETATE [Suspect]
     Active Substance: LEUPROLIDE ACETATE
     Indication: Precocious puberty
     Dosage: UNKNOWN
     Route: 058
     Dates: start: 202104

REACTIONS (6)
  - Weight decreased [Recovered/Resolved]
  - Psychomotor hyperactivity [Not Recovered/Not Resolved]
  - Thyroid disorder [Not Recovered/Not Resolved]
  - Iodine deficiency [Not Recovered/Not Resolved]
  - Gastrointestinal disorder [Recovered/Resolved]
  - Visual impairment [Not Recovered/Not Resolved]

NARRATIVE: CASE EVENT DATE: 20210401
